FAERS Safety Report 16858320 (Version 8)
Quarter: 2021Q4

REPORT INFORMATION
  Report Type: Spontaneous
  Country: SK (occurrence: SK)
  Receive Date: 20190926
  Receipt Date: 20211218
  Transmission Date: 20220303
  Serious: Yes (Life-Threatening, Hospitalization, Disabling, Other)
  Sender: FDA-Public Use
  Company Number: SK-BEH-2019106699

PATIENT
  Sex: Female

DRUGS (38)
  1. HUMAN IMMUNOGLOBULIN G [Suspect]
     Active Substance: HUMAN IMMUNOGLOBULIN G
     Indication: Foetal exposure timing unspecified
     Dosage: UNK
     Route: 064
     Dates: start: 20180423, end: 20180425
  2. HUMAN IMMUNOGLOBULIN G [Suspect]
     Active Substance: HUMAN IMMUNOGLOBULIN G
     Dosage: UNK
     Route: 064
  3. HUMAN IMMUNOGLOBULIN G [Suspect]
     Active Substance: HUMAN IMMUNOGLOBULIN G
     Dosage: UNK
     Route: 064
  4. HYDROCORTISONE [Suspect]
     Active Substance: HYDROCORTISONE
     Indication: Foetal exposure timing unspecified
     Dosage: UNK
     Route: 064
     Dates: start: 20180303, end: 20180309
  5. ALBUMIN HUMAN [Suspect]
     Active Substance: ALBUMIN HUMAN
     Indication: Foetal exposure timing unspecified
     Dosage: UNK
     Route: 064
     Dates: start: 20180327, end: 20180329
  6. DEXAMETHASONE [Suspect]
     Active Substance: DEXAMETHASONE
     Indication: Foetal exposure timing unspecified
     Dosage: UNK
     Route: 064
     Dates: start: 20180309, end: 20190504
  7. DEXAMETHASONE [Suspect]
     Active Substance: DEXAMETHASONE
     Dosage: UNK
     Route: 064
     Dates: start: 20180228, end: 20180302
  8. AMINOMETHYLBENZOIC ACID [Suspect]
     Active Substance: AMINOMETHYLBENZOIC ACID
     Indication: Foetal exposure timing unspecified
     Dosage: UNK
     Route: 064
     Dates: start: 20180227, end: 20180311
  9. CALCIUM CARBONATE [Suspect]
     Active Substance: CALCIUM CARBONATE
     Indication: Foetal exposure timing unspecified
     Dosage: UNK
     Route: 064
     Dates: start: 20180223
  10. HUMAN IMMUNOGLOBULIN G [Suspect]
     Active Substance: HUMAN IMMUNOGLOBULIN G
     Indication: Foetal exposure timing unspecified
     Dosage: UNK
     Route: 064
  11. HUMAN IMMUNOGLOBULIN G [Suspect]
     Active Substance: HUMAN IMMUNOGLOBULIN G
     Dosage: UNK
     Route: 064
  12. HUMAN IMMUNOGLOBULIN G [Suspect]
     Active Substance: HUMAN IMMUNOGLOBULIN G
     Dosage: UNK
     Dates: start: 20180423, end: 20180425
  13. VITAMIN K [Suspect]
     Active Substance: PHYTONADIONE
     Indication: Foetal exposure timing unspecified
     Dosage: UNK
     Route: 064
     Dates: start: 20180227, end: 20180309
  14. BISULEPIN [Suspect]
     Active Substance: BISULEPIN
     Indication: Foetal exposure timing unspecified
     Dosage: UNK
     Route: 064
     Dates: start: 20180327, end: 20180327
  15. NADROPARIN [Suspect]
     Active Substance: NADROPARIN
     Indication: Foetal exposure timing unspecified
     Dosage: UNK
     Route: 064
     Dates: start: 20180222, end: 20180226
  16. ETHAMSYLATE [Suspect]
     Active Substance: ETHAMSYLATE
     Indication: Foetal exposure timing unspecified
     Dosage: UNK
     Route: 064
     Dates: start: 20180222, end: 20180413
  17. METOPROLOL TARTRATE [Suspect]
     Active Substance: METOPROLOL TARTRATE
     Indication: Foetal exposure timing unspecified
     Dosage: UNK
     Route: 064
     Dates: start: 20180511
  18. POTASSIUM CHLORIDE [Suspect]
     Active Substance: POTASSIUM CHLORIDE
     Indication: Foetal exposure timing unspecified
     Dosage: UNK
     Route: 064
     Dates: start: 20180314
  19. PREDNISONE [Suspect]
     Active Substance: PREDNISONE
     Indication: Foetal exposure timing unspecified
     Dosage: UNK
     Route: 064
     Dates: start: 20180222, end: 20180227
  20. PREDNISONE [Suspect]
     Active Substance: PREDNISONE
     Dosage: UNK
     Route: 064
     Dates: start: 20180509
  21. VITAMIN B COMPLEX [Suspect]
     Active Substance: CYANOCOBALAMIN\DEXPANTHENOL\NIACINAMIDE\PYRIDOXINE HYDROCHLORIDE\RIBOFLAVIN 5^-PHOSPHATE SODIUM\THIA
     Indication: Foetal exposure timing unspecified
     Dosage: UNK
     Route: 064
     Dates: start: 20180326
  22. ACETAMINOPHEN [Suspect]
     Active Substance: ACETAMINOPHEN
     Indication: Foetal exposure timing unspecified
     Dosage: UNK
     Route: 064
     Dates: start: 20180222, end: 20180403
  23. FOLIC ACID [Suspect]
     Active Substance: FOLIC ACID
     Indication: Foetal exposure timing unspecified
     Dosage: UNK
     Route: 064
     Dates: start: 20180222
  24. METHYLPREDNISOLONE SODIUM SUCCINATE [Suspect]
     Active Substance: METHYLPREDNISOLONE SODIUM SUCCINATE
     Indication: Foetal exposure timing unspecified
     Dosage: UNK
     Route: 064
     Dates: start: 20180221, end: 20180223
  25. METHYLPREDNISOLONE SODIUM SUCCINATE [Suspect]
     Active Substance: METHYLPREDNISOLONE SODIUM SUCCINATE
     Dosage: UNK
     Route: 064
     Dates: start: 20180505, end: 20180509
  26. PENICILLIN G [Suspect]
     Active Substance: PENICILLIN G
     Indication: Foetal exposure timing unspecified
     Dosage: UNK
     Route: 064
     Dates: start: 20180224, end: 20180308
  27. ETHAMSYLATE [Suspect]
     Active Substance: ETHAMSYLATE
     Indication: Foetal exposure timing unspecified
     Dosage: UNK
     Route: 064
     Dates: start: 20180222, end: 20180413
  28. CEFIXIME [Suspect]
     Active Substance: CEFIXIME
     Indication: Foetal exposure timing unspecified
     Dosage: UNK
     Route: 064
     Dates: start: 20180501, end: 20180514
  29. VITAMIN D [Suspect]
     Active Substance: VITAMIN D NOS
     Indication: Foetal exposure timing unspecified
     Dosage: UNK
     Route: 064
     Dates: start: 20180222
  30. ORNIDAZOLE [Suspect]
     Active Substance: ORNIDAZOLE
     Indication: Foetal exposure timing unspecified
     Dosage: UNK
     Route: 064
     Dates: start: 20180501, end: 20180510
  31. OMEPRAZOLE [Suspect]
     Active Substance: OMEPRAZOLE
     Indication: Foetal exposure timing unspecified
     Dosage: UNK
     Route: 064
     Dates: start: 20180222
  32. BISOPROLOL FUMARATE [Suspect]
     Active Substance: BISOPROLOL FUMARATE
     Indication: Foetal exposure timing unspecified
     Dosage: UNK
     Route: 064
     Dates: start: 20180223, end: 20180327
  33. FLUCONAZOLE [Suspect]
     Active Substance: FLUCONAZOLE
     Indication: Foetal exposure timing unspecified
     Dosage: UNK
     Route: 064
     Dates: start: 20180227, end: 20180320
  34. MAGNESIUM LACTATE [Suspect]
     Active Substance: MAGNESIUM LACTATE
     Indication: Product used for unknown indication
     Dosage: UNK
     Route: 064
     Dates: start: 20180321, end: 20180405
  35. CEFOTAXIME [Suspect]
     Active Substance: CEFOTAXIME SODIUM
     Indication: Foetal exposure timing unspecified
     Dosage: UNK
     Route: 064
     Dates: start: 20180319, end: 20180329
  36. CEFOTAXIME [Suspect]
     Active Substance: CEFOTAXIME SODIUM
     Dosage: UNK
     Route: 064
     Dates: start: 20180412, end: 20180427
  37. CEFAZOLIN SODIUM [Suspect]
     Active Substance: CEFAZOLIN SODIUM
     Indication: Foetal exposure timing unspecified
     Dosage: UNK
     Route: 064
     Dates: start: 20180501, end: 20180511
  38. HYDROXYCHLOROQUINE [Suspect]
     Active Substance: HYDROXYCHLOROQUINE
     Indication: Foetal exposure timing unspecified
     Dosage: UNK
     Route: 064
     Dates: start: 20180222

REACTIONS (5)
  - Foetal growth restriction [Recovered/Resolved]
  - Oligohydramnios [Recovered/Resolved]
  - Premature baby [Recovered/Resolved]
  - Maternal exposure during pregnancy [Unknown]
  - Foetal exposure during pregnancy [Unknown]

NARRATIVE: CASE EVENT DATE: 20180404
